FAERS Safety Report 8384654-3 (Version None)
Quarter: 2012Q2

REPORT INFORMATION
  Report Type: 
  Country: None (occurrence: None)
  Receive Date: 20120524
  Receipt Date: 20120515
  Transmission Date: 20120825
  Serious: Yes (Death)
  Sender: FDA-Public Use
  Company Number: DE-BAXTER-2010BH013489

PATIENT
  Sex: Female

DRUGS (18)
  1. EXTRANEAL [Suspect]
     Indication: DIABETES MELLITUS
  2. PHYSIOSOL IN PLASTIC CONTAINER [Suspect]
  3. EXTRANEAL [Suspect]
  4. NUTRINEAL [Suspect]
     Indication: DIABETES MELLITUS
  5. TORSEMIDE [Concomitant]
     Route: 065
  6. SIMVASTATIN [Concomitant]
     Route: 065
  7. ARANESP [Concomitant]
     Route: 065
  8. BISOPROLOL FUMARATE [Concomitant]
     Route: 065
  9. PANTOPRAZOLE [Concomitant]
     Route: 065
  10. EXTRANEAL [Suspect]
     Route: 033
     Dates: start: 20091001
  11. PHYSIOSOL IN PLASTIC CONTAINER [Suspect]
     Route: 033
     Dates: start: 20091001
  12. PHYSIOSOL IN PLASTIC CONTAINER [Suspect]
     Indication: DIABETES MELLITUS
  13. IRBESARTAN [Concomitant]
     Route: 065
  14. RAMIPRIL [Concomitant]
     Route: 065
  15. INSULIN [Concomitant]
     Route: 065
  16. NUTRINEAL [Suspect]
     Route: 033
     Dates: start: 20091001
  17. NUTRINEAL [Suspect]
  18. AMLODIPINE BESYLATE [Concomitant]
     Route: 065

REACTIONS (1)
  - DEATH [None]
